FAERS Safety Report 15850253 (Version 1)
Quarter: 2019Q1

REPORT INFORMATION
  Report Type: Spontaneous
  Country: US (occurrence: US)
  Receive Date: 20190121
  Receipt Date: 20190121
  Transmission Date: 20190417
  Serious: No
  Sender: FDA-Public Use
  Company Number: US-PFIZER INC-2019025744

PATIENT
  Age: 6 Year
  Sex: Male

DRUGS (3)
  1. GENOTROPIN MQ [Suspect]
     Active Substance: SOMATROPIN
     Indication: OPTIC NERVE HYPOPLASIA
     Dosage: 0.6 MG, DAILY
     Dates: start: 20180406
  2. GENOTROPIN MQ [Suspect]
     Active Substance: SOMATROPIN
     Indication: SEPTO-OPTIC DYSPLASIA
  3. GENOTROPIN MQ [Suspect]
     Active Substance: SOMATROPIN
     Indication: GONADOTROPHIN DEFICIENCY

REACTIONS (1)
  - Drug ineffective for unapproved indication [Unknown]
